FAERS Safety Report 5530453-7 (Version None)
Quarter: 2007Q4

REPORT INFORMATION
  Report Type: 
  Country: None (occurrence: None)
  Receive Date: 20071127
  Receipt Date: 20071114
  Transmission Date: 20080405
  Serious: Yes (Death, Other)
  Sender: FDA-Public Use
  Company Number: GXKR2007GB08997

PATIENT
  Age: 82 Year
  Sex: Female

DRUGS (11)
  1. FUROSEMIDE [Suspect]
     Indication: CARDIAC FAILURE
     Dosage: 120 MG/DAY; 80 MG AT MORNING, 40 MG AT LUNCH; 40 MG, QD
     Dates: end: 20070731
  2. CEFUROXIME [Suspect]
     Indication: URINARY TRACT INFECTION
  3. ADCAL-D3 (CALCIUM CARBONATE, COLECALCIFEROL) [Concomitant]
  4. BECLOMETHASONE DIPROPIONATE [Concomitant]
  5. CODEINE PHOSPHATE AND ACETAMINOPHEN [Concomitant]
  6. FLUOXETINE [Concomitant]
  7. GAVISCON LIQUID ^FERRING^ (ALUMINIUM HYDROXIDE, CALCIUM CARBONATE, SOD [Concomitant]
  8. MOVICOL (MAGROGOL, POTASSIUM CHLORIDE, SODIUM BICARBONATE, SODIUM CHLO [Concomitant]
  9. SALBUTAMOL (SALBUTAMOL) [Concomitant]
  10. SENNA (SENNA, SENNA ALEXANDRINA) [Concomitant]
  11. TOLTERODINE TARTRATE [Concomitant]

REACTIONS (3)
  - CLOSTRIDIUM DIFFICILE COLITIS [None]
  - METABOLIC ALKALOSIS [None]
  - URINARY TRACT INFECTION [None]
